FAERS Safety Report 17662678 (Version 1)
Quarter: 2020Q2

REPORT INFORMATION
  Report Type: Report from Study
  Country: US (occurrence: US)
  Receive Date: 20200413
  Receipt Date: 20200413
  Transmission Date: 20200713
  Serious: No
  Sender: FDA-Public Use
  Company Number: US-CELGENEUS-USA-20200401724

PATIENT
  Age: 80 Year
  Sex: Female

DRUGS (4)
  1. JAKAFI [Concomitant]
     Active Substance: RUXOLITINIB
     Dosage: 40 MILLIGRAM
     Route: 065
     Dates: start: 201902, end: 201910
  2. INREBIC [Suspect]
     Active Substance: FEDRATINIB HYDROCHLORIDE
     Dosage: 200 MILLIGRAM AND 400 MILLIGRAM RESPECTIVELY
     Route: 048
     Dates: start: 202001
  3. INREBIC [Suspect]
     Active Substance: FEDRATINIB HYDROCHLORIDE
     Indication: MYELOFIBROSIS
     Dosage: 200 MILLIGRAM AND 400 MILLIGRAM RESPECTIVELY
     Route: 048
     Dates: start: 202001
  4. JAKAFI [Concomitant]
     Active Substance: RUXOLITINIB
     Indication: MYELOFIBROSIS
     Dosage: 10 MILLIGRAM
     Route: 065
     Dates: start: 201902, end: 201910

REACTIONS (1)
  - Adverse drug reaction [Unknown]
